FAERS Safety Report 25506598 (Version 1)
Quarter: 2025Q3

REPORT INFORMATION
  Report Type: Spontaneous
  Country: EU (occurrence: EU)
  Receive Date: 20250702
  Receipt Date: 20250702
  Transmission Date: 20251020
  Serious: Yes (Other)
  Sender: DR REDDYS
  Company Number: None

PATIENT
  Age: 81 Year
  Sex: Female
  Weight: 61 kg

DRUGS (26)
  1. DAPTOMYCIN [Suspect]
     Active Substance: DAPTOMYCIN
     Indication: Staphylococcal bacteraemia
     Route: 042
     Dates: start: 20250502, end: 20250508
  2. DAPTOMYCIN [Suspect]
     Active Substance: DAPTOMYCIN
     Indication: Skin infection
  3. PIPERACILLIN SODIUM\TAZOBACTAM SODIUM [Suspect]
     Active Substance: PIPERACILLIN SODIUM\TAZOBACTAM SODIUM
     Indication: Septic shock
     Dosage: 4G TOUTES LES 6 HEURES (4G EVERY 6 HOURS)
     Route: 042
     Dates: start: 20250429, end: 20250509
  4. CEFAZOLIN SODIUM [Suspect]
     Active Substance: CEFAZOLIN SODIUM
     Indication: Abscess limb
     Route: 042
     Dates: start: 20250426, end: 20250510
  5. BACTRIM [Suspect]
     Active Substance: SULFAMETHOXAZOLE\TRIMETHOPRIM
     Indication: Pneumocystis jirovecii pneumonia
     Dosage: 1 CPR = 800MG SULFAMETHOXAZOLE + 160MG TRIMETHOPRIME?3-2-3CPR /1 CPR = 800 MG SULFAMETHOXAZOLE + 160
     Route: 048
     Dates: start: 20250515, end: 20250521
  6. AMOXICILLIN\CLAVULANATE POTASSIUM [Suspect]
     Active Substance: AMOXICILLIN\CLAVULANATE POTASSIUM
     Indication: Abscess limb
     Dosage: 1 SACHET = 1G AMOXICILLINE + 125MG ACIDE CLAVULANIQUE?1-1-1SACHET /1 SACHET = 1G AMOXICILLIN + 125MG
     Route: 048
     Dates: start: 20250509, end: 20250522
  7. AMOXICILLIN\CLAVULANATE POTASSIUM [Suspect]
     Active Substance: AMOXICILLIN\CLAVULANATE POTASSIUM
     Indication: Staphylococcal bacteraemia
  8. OPTIRAY [Suspect]
     Active Substance: IOVERSOL
     Indication: Computerised tomogram
     Route: 042
     Dates: start: 20250423, end: 20250423
  9. IOMERON [Suspect]
     Active Substance: IOMEPROL
     Indication: Computerised tomogram
     Route: 042
     Dates: start: 20250505, end: 20250505
  10. IOMERON [Suspect]
     Active Substance: IOMEPROL
     Route: 042
     Dates: end: 20250428
  11. IOMERON [Suspect]
     Active Substance: IOMEPROL
     Route: 042
     Dates: end: 20250514
  12. OMNIPAQUE [Suspect]
     Active Substance: IOHEXOL
     Indication: Computerised tomogram
     Route: 042
     Dates: start: 20250520, end: 20250520
  13. ALBENDAZOLE [Concomitant]
     Active Substance: ALBENDAZOLE
     Indication: Pneumocystis jirovecii pneumonia
     Route: 048
     Dates: start: 20250529, end: 20250610
  14. RAMIPRIL [Concomitant]
     Active Substance: RAMIPRIL
     Indication: Hypertension
     Route: 048
  15. ACETAMINOPHEN [Concomitant]
     Active Substance: ACETAMINOPHEN
     Indication: Product used for unknown indication
     Route: 048
  16. LANSOPRAZOLE [Concomitant]
     Active Substance: LANSOPRAZOLE
     Indication: Product used for unknown indication
     Route: 048
  17. ELIQUIS [Concomitant]
     Active Substance: APIXABAN
     Indication: Atrial fibrillation
     Dosage: 5MG-0-5MG
     Route: 048
  18. CLINDAMYCIN [Concomitant]
     Active Substance: CLINDAMYCIN
     Indication: Dermo-hypodermitis
     Dosage: 600 MG TOUTES LES 8H (600 MG EVERY 8 HOURS)
     Route: 048
     Dates: start: 20250523, end: 20250603
  19. PREDNISONE [Concomitant]
     Active Substance: PREDNISONE
     Indication: Product used for unknown indication
     Route: 048
  20. HYDROCORTISONE [Concomitant]
     Active Substance: HYDROCORTISONE
     Indication: Product used for unknown indication
     Route: 048
  21. BECLOMETASONE (DIPROPIONATE) [Concomitant]
     Indication: Asthma
     Route: 055
     Dates: start: 20250512
  22. FORMOTEROL DIHYDRATE (FUMARATE) [Concomitant]
     Indication: Asthma
     Route: 055
     Dates: start: 20250512
  23. CALCIUM CARBONATE [Concomitant]
     Active Substance: CALCIUM CARBONATE
     Indication: Hypocalcaemia
     Route: 048
  24. HUMALOG [Concomitant]
     Active Substance: INSULIN LISPRO
     Indication: Steroid diabetes
     Route: 058
  25. POTASSIUM CHLORIDE [Concomitant]
     Active Substance: POTASSIUM CHLORIDE
     Indication: Product used for unknown indication
     Dosage: 1200-1200-1200MG /J
     Route: 048
     Dates: start: 20250430, end: 20250507
  26. ATOVAQUONE [Concomitant]
     Active Substance: ATOVAQUONE
     Indication: Product used for unknown indication
     Dosage: 750-0-750MG /J
     Route: 048
     Dates: start: 20250522, end: 20250612

REACTIONS (1)
  - Rash maculo-papular [Recovering/Resolving]

NARRATIVE: CASE EVENT DATE: 20250520
